FAERS Safety Report 5005592-X (Version None)
Quarter: 2006Q2

REPORT INFORMATION
  Report Type: 
  Country: None (occurrence: None)
  Receive Date: 20060517
  Receipt Date: 20060517
  Transmission Date: 20061013
  Serious: Yes (Hospitalization)
  Sender: FDA-Public Use
  Company Number: None

PATIENT
  Age: 75 Year
  Sex: Male
  Weight: 54.8852 kg

DRUGS (5)
  1. CEFTRIAXONE [Suspect]
     Indication: PNEUMONIA
     Dosage: 1 GM  DAILY  IV
     Route: 042
     Dates: start: 20060424, end: 20060426
  2. AZITHROMYCIN [Suspect]
     Indication: PNEUMONIA
     Dosage: 500 MG   DAILY  IV
     Route: 042
     Dates: start: 20060424, end: 20060427
  3. PIPERACILLIN AND TAZOBACTAM [Concomitant]
  4. RANITIDINE [Concomitant]
  5. GAVISCON [Concomitant]

REACTIONS (1)
  - DIARRHOEA [None]
